FAERS Safety Report 8168456-9 (Version None)
Quarter: 2012Q1

REPORT INFORMATION
  Report Type: 
  Country: None (occurrence: None)
  Receive Date: 20120227
  Receipt Date: 20120221
  Transmission Date: 20120608
  Serious: Yes (Hospitalization, Other)
  Sender: FDA-Public Use
  Company Number: JP-B.I. PHARMACEUTICALS,INC./RIDGEFIELD-2012-BP-02464NB

PATIENT
  Sex: Male
  Weight: 80 kg

DRUGS (11)
  1. PRADAXA [Suspect]
     Indication: ATRIAL FIBRILLATION
     Dosage: 300 MG
     Route: 048
     Dates: start: 20110622, end: 20120130
  2. SUNRYTHM [Concomitant]
     Dosage: 125 MG
     Route: 065
  3. AMARYL [Concomitant]
     Dosage: 3 MG
     Route: 065
  4. LANSOPRAZOLE [Concomitant]
     Dosage: 15 MG
     Route: 065
  5. MICARDIS [Concomitant]
     Dosage: 40 MG
     Route: 065
  6. CARVEDILOL [Concomitant]
     Dosage: 2.5 MG
     Route: 065
  7. CALBLOCK [Concomitant]
     Dosage: 16 MG
     Route: 065
  8. PRAVASTATIN SODIUM [Concomitant]
     Dosage: 20 MG
     Route: 065
  9. WARFARIN SODIUM [Concomitant]
     Dosage: 3.5 MG
     Route: 065
  10. METFORMIN HCL [Concomitant]
     Dosage: 1000 MG
     Route: 065
  11. ASPIRIN [Concomitant]
     Dosage: 100 MG
     Route: 065

REACTIONS (2)
  - TRANSIENT ISCHAEMIC ATTACK [None]
  - DRUG INEFFECTIVE [None]
